FAERS Safety Report 18482197 (Version 2)
Quarter: 2021Q1

REPORT INFORMATION
  Report Type: Report from Study
  Country: None (occurrence: NL)
  Receive Date: 20201110
  Receipt Date: 20210308
  Transmission Date: 20210419
  Serious: Yes (Disabling, Other)
  Sender: FDA-Public Use
  Company Number: NL-ABBVIE-20K-114-3626980-00

PATIENT
  Sex: Male

DRUGS (1)
  1. HUMIRA [Suspect]
     Active Substance: ADALIMUMAB
     Indication: UVEITIS
     Route: 058
     Dates: start: 20200708

REACTIONS (7)
  - Intraocular lens implant [Recovering/Resolving]
  - Eye pain [Recovering/Resolving]
  - Injury corneal [Recovering/Resolving]
  - Foreign body sensation in eyes [Recovering/Resolving]
  - Post procedural complication [Recovering/Resolving]
  - Lacrimation increased [Recovering/Resolving]
  - Cataract [Recovered/Resolved]

NARRATIVE: CASE EVENT DATE: 2020
